FAERS Safety Report 8998642 (Version 1)
Quarter: 2013Q1

REPORT INFORMATION
  Report Type: Spontaneous
  Country: JP (occurrence: JP)
  Receive Date: 20130103
  Receipt Date: 20130103
  Transmission Date: 20140127
  Serious: Yes (Other)
  Sender: FDA-Public Use
  Company Number: PHHY2012JP121698

PATIENT
  Age: 54 Month
  Sex: Female

DRUGS (5)
  1. CICLOSPORIN [Suspect]
     Indication: NEPHROTIC SYNDROME
  2. PREDNISOLONE [Suspect]
     Indication: NEPHROTIC SYNDROME
  3. MYCOPHENOLATE MOFETIL [Suspect]
     Indication: NEPHROTIC SYNDROME
  4. CYCLOPHOSPHAMIDE [Suspect]
     Indication: NEPHROTIC SYNDROME
  5. MIZORIBINE [Suspect]
     Indication: NEPHROTIC SYNDROME

REACTIONS (3)
  - Nephrotic syndrome [Unknown]
  - Nephropathy toxic [Unknown]
  - Toxicity to various agents [Unknown]
